FAERS Safety Report 8397111-5 (Version None)
Quarter: 2012Q2

REPORT INFORMATION
  Report Type: 
  Country: None (occurrence: None)
  Receive Date: 20120530
  Receipt Date: 20120522
  Transmission Date: 20120825
  Serious: Yes (Other)
  Sender: FDA-Public Use
  Company Number: BR-ABBOTT-12P-020-0938305-00

PATIENT
  Sex: Female
  Weight: 41 kg

DRUGS (3)
  1. CREON [Suspect]
     Indication: PANCREATIC DISORDER
     Route: 048
     Dates: start: 20100101
  2. ELANI 28 [Concomitant]
     Indication: CONTRACEPTION
     Route: 048
  3. ELANI 28 [Concomitant]
     Indication: POLYCYSTIC OVARIES

REACTIONS (6)
  - DIZZINESS [None]
  - SWELLING [None]
  - SYNCOPE [None]
  - FLATULENCE [None]
  - CONSTIPATION [None]
  - ABDOMINAL PAIN [None]
